FAERS Safety Report 23138455 (Version 1)
Quarter: 2023Q4

REPORT INFORMATION
  Report Type: Spontaneous
  Country: US (occurrence: None)
  Receive Date: 20231101
  Receipt Date: 20231101
  Transmission Date: 20240109
  Serious: Yes (Other)
  Sender: FDA-Public Use
  Company Number: None

PATIENT
  Age: 60 Year
  Sex: Female
  Weight: 83.25 kg

DRUGS (6)
  1. FLUVASTATIN SODIUM [Suspect]
     Active Substance: FLUVASTATIN SODIUM
     Indication: Blood cholesterol increased
     Dosage: OTHER QUANTITY : 90 CAPSULE(S);?FREQUENCY : AT BEDTIME;?
     Route: 048
  2. ASPIRIN [Concomitant]
     Active Substance: ASPIRIN
  3. VITAMINS [Concomitant]
     Active Substance: VITAMINS
  4. OMEGA 3 [Concomitant]
     Active Substance: CAPSAICIN
  5. VITAMIN D [Concomitant]
     Active Substance: VITAMIN D NOS
  6. CLARITIN [Concomitant]
     Active Substance: LORATADINE

REACTIONS (3)
  - Dry mouth [None]
  - Dysgeusia [None]
  - Dry eye [None]

NARRATIVE: CASE EVENT DATE: 20230601
